FAERS Safety Report 10390103 (Version 1)
Quarter: 2014Q3

REPORT INFORMATION
  Report Type: Spontaneous
  Country: ES (occurrence: None)
  Receive Date: 20140814
  Receipt Date: 20140814
  Transmission Date: 20150326
  Serious: Yes (Death)
  Sender: FDA-Public Use
  Company Number: 2014ES01047

PATIENT
  Age: 75 Year
  Sex: Female

DRUGS (4)
  1. CARBOPLATIN (CARBOPLATIN) INJECTION [Suspect]
     Active Substance: CARBOPLATIN
     Indication: OVARIAN CANCER STAGE IV
     Dosage: 3 TO 4 CYCLES
  2. PACLITAXEL (PACLITAXEL) [Suspect]
     Active Substance: PACLITAXEL
     Indication: OVARIAN CANCER STAGE IV
     Dosage: 60MG/M2, USING THE OPEN TECHNIQUE, OVER 60MIN, MAINTNG A CONSTANT INTRAABDOMINAL TEMP OF 42 DEG C
  3. PACLITAXEL (PACLITAXEL) [Suspect]
     Active Substance: PACLITAXEL
     Indication: OVARIAN CANCER STAGE IV
     Dosage: 3 TO 4 CYCLES
  4. CISPLATIN (CISPLATIN) [Suspect]
     Active Substance: CISPLATIN
     Indication: OVARIAN CANCER STAGE IV
     Dosage: 75MG/M2, USING THE OPEN TECHNIQUE OVER 60 MIN, MAINNG A CONSTANT INTRAABDOMINAL TEMP OF 42 DEG C

REACTIONS (1)
  - Death [None]
